FAERS Safety Report 12946132 (Version 1)
Quarter: 2016Q4

REPORT INFORMATION
  Report Type: Spontaneous
  Country: BG (occurrence: BG)
  Receive Date: 20161116
  Receipt Date: 20161116
  Transmission Date: 20170207
  Serious: Yes (Other)
  Sender: FDA-Public Use
  Company Number: BG-ASTRAZENECA-2016SF20996

PATIENT
  Age: 60 Year
  Sex: Male

DRUGS (4)
  1. DAXAS [Suspect]
     Active Substance: ROFLUMILAST
     Route: 048
     Dates: start: 2013
  2. THIOTROPIUM [Concomitant]
  3. SALBUTAMOL/FLUTICASONE [Concomitant]
     Dosage: 50 MCG/500 MCG 2X1 DAILY
  4. THEOPHYLLINE [Concomitant]
     Active Substance: THEOPHYLLINE ANHYDROUS

REACTIONS (1)
  - Condition aggravated [Unknown]

NARRATIVE: CASE EVENT DATE: 2014
